FAERS Safety Report 7080562-9 (Version None)
Quarter: 2010Q4

REPORT INFORMATION
  Report Type: 
  Country: None (occurrence: None)
  Receive Date: 20101103
  Receipt Date: 20101020
  Transmission Date: 20110411
  Serious: Yes (Death)
  Sender: FDA-Public Use
  Company Number: US-AMGEN-USASP2010000874

PATIENT

DRUGS (1)
  1. NPLATE [Suspect]
     Dosage: 500 A?G, UNK
     Dates: start: 20100513, end: 20100513

REACTIONS (1)
  - MALIGNANT NEOPLASM PROGRESSION [None]
